FAERS Safety Report 10143183 (Version 2)
Quarter: 2015Q2

REPORT INFORMATION
  Report Type: Spontaneous
  Country: US (occurrence: None)
  Receive Date: 20140428
  Receipt Date: 20150612
  Transmission Date: 20150821
  Serious: Yes (Other)
  Sender: FDA-Public Use
  Company Number: ADR-2013-00103

PATIENT
  Age: 51 Year
  Sex: Male

DRUGS (4)
  1. FENTANYL. [Suspect]
     Active Substance: FENTANYL
  2. HYDROMORPHONE [Suspect]
     Active Substance: HYDROMORPHONE
     Indication: PAIN
  3. BACLOFEN INTRATHECAL [Suspect]
     Active Substance: BACLOFEN
     Indication: PAIN
  4. BUPIVACAINE [Suspect]
     Active Substance: BUPIVACAINE

REACTIONS (22)
  - Suicidal ideation [None]
  - Procedural complication [None]
  - Screaming [None]
  - Feeling hot [None]
  - Vomiting [None]
  - Neck pain [None]
  - Drug withdrawal syndrome [None]
  - Fluid intake reduced [None]
  - Sciatica [None]
  - Headache [None]
  - Loss of consciousness [None]
  - No therapeutic response [None]
  - Pain in extremity [None]
  - Incorrect route of drug administration [None]
  - Pain [None]
  - Cerebrospinal fluid leakage [None]
  - Malaise [None]
  - Device dislocation [None]
  - Detoxification [None]
  - Euphoric mood [None]
  - Diarrhoea [None]
  - Hypophagia [None]
